FAERS Safety Report 21216304 (Version 1)
Quarter: 2022Q3

REPORT INFORMATION
  Report Type: Other
  Country: CZ (occurrence: CZ)
  Receive Date: 20220816
  Receipt Date: 20220816
  Transmission Date: 20221027
  Serious: Yes (Life-Threatening, Other)
  Sender: FDA-Public Use
  Company Number: CZ-CELLTRION HEALTHCARE HUNGARY KFT-2022CZ012301

PATIENT

DRUGS (4)
  1. RITUXIMAB [Suspect]
     Active Substance: RITUXIMAB
     Indication: Mantle cell lymphoma
     Dosage: PATIENTS IN REMISSION (PR/CR) AFTER 12 WEEKS OF TREATMENT COULD UNDERGO EXTENDED TREATMENT (12 MG/KG
     Route: 065
  2. RITUXIMAB [Suspect]
     Active Substance: RITUXIMAB
     Indication: Non-Hodgkin^s lymphoma
     Dosage: 12 MG/KG, WEEKLY FOR 8 WEEKS
     Route: 065
  3. RITUXIMAB [Suspect]
     Active Substance: RITUXIMAB
     Indication: Follicular lymphoma
  4. RITUXIMAB [Suspect]
     Active Substance: RITUXIMAB
     Indication: Diffuse large B-cell lymphoma

REACTIONS (4)
  - Toxicity to various agents [Unknown]
  - Disease progression [Unknown]
  - Infusion related reaction [Unknown]
  - Neutropenia [Unknown]
